FAERS Safety Report 9798588 (Version 1)
Quarter: 2014Q1

REPORT INFORMATION
  Report Type: Spontaneous
  Country: US (occurrence: US)
  Receive Date: 20140106
  Receipt Date: 20140106
  Transmission Date: 20141002
  Serious: Yes (Death, Other)
  Sender: FDA-Public Use
  Company Number: US-UCBSA-107976

PATIENT
  Age: 48 Year
  Sex: Female

DRUGS (6)
  1. ALPRAZOLAM [Suspect]
  2. PHENTERMINE [Suspect]
     Dosage: EXTENDED RELEASE
  3. MORPHINE [Suspect]
     Dosage: EXTENDED RELEASE
  4. METHADONE [Suspect]
  5. OXYCODONE [Suspect]
  6. CITALOPRAM [Suspect]

REACTIONS (2)
  - Cardio-respiratory arrest [Fatal]
  - Completed suicide [Fatal]
